FAERS Safety Report 9206136 (Version 6)
Quarter: 2014Q2

REPORT INFORMATION
  Report Type: Spontaneous
  Country: US (occurrence: None)
  Receive Date: 20130401
  Receipt Date: 20140418
  Transmission Date: 20141212
  Serious: Yes (Other)
  Sender: FDA-Public Use
  Company Number: 1303-383

PATIENT
  Age: 56 Year
  Sex: Female
  Weight: 90 kg

DRUGS (4)
  1. VEGF TRAP-EYE [Suspect]
     Indication: RETINAL VEIN OCCLUSION
     Dosage: 2MG, Q4WKS, INTRAVITREAL
     Route: 047
     Dates: start: 20130118, end: 20130318
  2. ASPIRIN (ACETYLSALICYLIC ACID) [Concomitant]
  3. SIMVASTATIN (SIMVASTATIN) TABLET [Concomitant]
  4. EFFEXOR VENLAFAXINE HYDROCHLORIDE) (TABLET)? [Concomitant]

REACTIONS (6)
  - Cataract subcapsular [None]
  - Family stress [None]
  - Cataract traumatic [None]
  - Vision blurred [None]
  - Visual impairment [None]
  - Retinal vein occlusion [None]
